FAERS Safety Report 24379316 (Version 1)
Quarter: 2024Q3

REPORT INFORMATION
  Report Type: Spontaneous
  Country: US (occurrence: US)
  Receive Date: 20240930
  Receipt Date: 20240930
  Transmission Date: 20241016
  Serious: No
  Sender: BAYER
  Company Number: US-BAYER-2024A135760

PATIENT
  Age: 81 Year
  Sex: Male

DRUGS (3)
  1. MILK OF MAGNESIA CHERRY [Suspect]
     Active Substance: MAGNESIUM HYDROXIDE
     Indication: Gastrointestinal disorder
     Dosage: START AT 30ML TO 60 NOW TAKING 45ML AT BED TIME
     Route: 048
     Dates: start: 2024, end: 2024
  2. MIRALAX [Suspect]
     Active Substance: POLYETHYLENE GLYCOL 3350
     Indication: Gastrointestinal disorder
     Dosage: 1 CAPFUL
     Route: 048
  3. METAMUCIL [Concomitant]
     Active Substance: PLANTAGO SEED
     Indication: Gastrointestinal disorder
     Dosage: UNK

REACTIONS (1)
  - Therapeutic product effect delayed [None]
